FAERS Safety Report 12292760 (Version 1)
Quarter: 2016Q2

REPORT INFORMATION
  Report Type: Report from Study
  Country: US (occurrence: US)
  Receive Date: 20160421
  Receipt Date: 20160421
  Transmission Date: 20160815
  Serious: No
  Sender: FDA-Public Use
  Company Number: US-AMGEN-USASL2016031925

PATIENT
  Age: 52 Year
  Sex: Male

DRUGS (1)
  1. REPATHA [Suspect]
     Active Substance: EVOLOCUMAB
     Indication: PRODUCT USED FOR UNKNOWN INDICATION
     Dosage: UNK
     Route: 065

REACTIONS (9)
  - Libido decreased [Unknown]
  - Hypertension [Unknown]
  - Cough [Unknown]
  - Myalgia [Unknown]
  - Erectile dysfunction [Unknown]
  - Headache [Unknown]
  - Arthralgia [Unknown]
  - Muscle spasms [Unknown]
  - Productive cough [Unknown]
